FAERS Safety Report 10059522 (Version 1)
Quarter: 2014Q2

REPORT INFORMATION
  Report Type: Spontaneous
  Country: US (occurrence: US)
  Receive Date: 20140404
  Receipt Date: 20140404
  Transmission Date: 20141212
  Serious: No
  Sender: FDA-Public Use
  Company Number: US-BAYER-2014-042359

PATIENT
  Age: 38 Year
  Sex: Female

DRUGS (1)
  1. BEYAZ [Suspect]
     Indication: HORMONE THERAPY
     Dosage: UNK
     Dates: start: 20140304

REACTIONS (2)
  - Abdominal distension [None]
  - Off label use [None]
